FAERS Safety Report 13120724 (Version 2)
Quarter: 2017Q4

REPORT INFORMATION
  Report Type: Spontaneous
  Country: DE (occurrence: DE)
  Receive Date: 20170117
  Receipt Date: 20171215
  Transmission Date: 20180320
  Serious: Yes (Hospitalization)
  Sender: FDA-Public Use
  Company Number: DE-ROCHE-1870884

PATIENT
  Age: 59 Year
  Sex: Male
  Weight: 75 kg

DRUGS (10)
  1. MABTHERA [Suspect]
     Active Substance: RITUXIMAB
     Route: 042
     Dates: start: 20161101, end: 20161101
  2. FENISTIL (GERMANY) [Concomitant]
     Dosage: 60 MIN PRIOR TO MABTHERA
     Route: 042
  3. MABTHERA [Suspect]
     Active Substance: RITUXIMAB
     Route: 042
     Dates: start: 20161103, end: 20161103
  4. SOLU DECORTIN [Concomitant]
     Active Substance: PREDNISOLONE SODIUM SUCCINATE
     Dosage: DAY 1 AND 2 OF CYCLE
     Route: 042
  5. PARACETAMOL [Concomitant]
     Active Substance: ACETAMINOPHEN
     Dosage: DAY 0 OF CYCLE
     Route: 048
  6. MABTHERA [Suspect]
     Active Substance: RITUXIMAB
     Indication: LYMPHOPLASMACYTOID LYMPHOMA/IMMUNOCYTOMA
     Route: 042
  7. BENDAMUSTINE [Suspect]
     Active Substance: BENDAMUSTINE
     Indication: PRODUCT USED FOR UNKNOWN INDICATION
     Route: 065
  8. NACL 0.9 IV SOLUTION [Concomitant]
     Dosage: DAY 1 AND 2 OF CYCLE
     Route: 065
  9. MABTHERA [Suspect]
     Active Substance: RITUXIMAB
     Route: 042
     Dates: start: 20161102, end: 20161102
  10. MABTHERA [Suspect]
     Active Substance: RITUXIMAB
     Dosage: ON DAY 0 OF EACH 28 DAYS-CYCLE FROM CYCLE 2 TO 6
     Route: 042

REACTIONS (4)
  - Malaise [Unknown]
  - Respiratory distress [Recovering/Resolving]
  - Paraesthesia [Unknown]
  - Dyspnoea [Recovering/Resolving]

NARRATIVE: CASE EVENT DATE: 20161213
